FAERS Safety Report 4315293-9 (Version None)
Quarter: 2004Q1

REPORT INFORMATION
  Report Type: 
  Country: None (occurrence: None)
  Receive Date: 20040309
  Receipt Date: 20040223
  Transmission Date: 20041129
  Serious: Yes (Other)
  Sender: FDA-Public Use
  Company Number: US_0402101094

PATIENT
  Age: 11 Year
  Sex: Female

DRUGS (2)
  1. HUMATROPE [Suspect]
     Dosage: 3.2 MG
     Dates: start: 20011201
  2. SYNTHROID [Concomitant]

REACTIONS (2)
  - SLIPPED FEMORAL EPIPHYSIS [None]
  - TURNER'S SYNDROME [None]
